FAERS Safety Report 14270152 (Version 3)
Quarter: 2018Q1

REPORT INFORMATION
  Report Type: Spontaneous
  Country: BR (occurrence: BR)
  Receive Date: 20171211
  Receipt Date: 20180119
  Transmission Date: 20180508
  Serious: Yes (Hospitalization, Other)
  Sender: FDA-Public Use
  Company Number: BR-PFIZER INC-2017469161

PATIENT
  Age: 58 Year
  Sex: Female

DRUGS (10)
  1. VITAMIN B1 [Concomitant]
     Active Substance: THIAMINE HYDROCHLORIDE
     Dosage: UNK
  2. CARDIZEM [Concomitant]
     Active Substance: DILTIAZEM HYDROCHLORIDE
     Dosage: UNK
  3. MAGNEN B6 [Concomitant]
     Dosage: UNK
  4. LYRICA [Suspect]
     Active Substance: PREGABALIN
     Indication: PERIPHERAL SENSORIMOTOR NEUROPATHY
     Dosage: 75 MG, 2X/DAY
     Dates: start: 2007
  5. RIVOTRIL [Interacting]
     Active Substance: CLONAZEPAM
     Dosage: UNK
  6. LYRICA [Interacting]
     Active Substance: PREGABALIN
     Dosage: 150 MG, 2X/DAY (75 MG, 2 IN THE MORNING AND 2 AT NIGHT)
  7. ANTIPRESS /00498401/ [Concomitant]
     Dosage: UNK
     Dates: start: 1997
  8. ARTRODAR [Concomitant]
     Active Substance: DIACEREIN
     Indication: BONE DISORDER
     Dosage: UNK
  9. SINVASCOR [Concomitant]
     Active Substance: SIMVASTATIN
     Dosage: UNK
     Dates: start: 2012
  10. LYRICA [Interacting]
     Active Substance: PREGABALIN
     Dosage: 75 MG, 2X/DAY (1 IN THE MORNING AND 1 AT NIGHT)

REACTIONS (27)
  - Nausea [Not Recovered/Not Resolved]
  - Dry eye [Not Recovered/Not Resolved]
  - Abdominal pain [Not Recovered/Not Resolved]
  - Blood potassium decreased [Recovered/Resolved]
  - Abdominal pain upper [Not Recovered/Not Resolved]
  - Dysgeusia [Not Recovered/Not Resolved]
  - Feeling abnormal [Not Recovered/Not Resolved]
  - Insomnia [Not Recovered/Not Resolved]
  - Lung disorder [Not Recovered/Not Resolved]
  - Intentional product use issue [Not Recovered/Not Resolved]
  - Amnesia [Not Recovered/Not Resolved]
  - Tongue dry [Not Recovered/Not Resolved]
  - Gastrooesophageal reflux disease [Not Recovered/Not Resolved]
  - Fatigue [Not Recovered/Not Resolved]
  - Pulmonary pain [Not Recovered/Not Resolved]
  - Poor quality drug administered [Not Recovered/Not Resolved]
  - Liver disorder [Unknown]
  - Multiple sclerosis [Not Recovered/Not Resolved]
  - Vomiting [Not Recovered/Not Resolved]
  - Product taste abnormal [Not Recovered/Not Resolved]
  - Drug effect decreased [Not Recovered/Not Resolved]
  - Suicide attempt [Recovered/Resolved]
  - Diarrhoea [Not Recovered/Not Resolved]
  - Renal disorder [Unknown]
  - Drug interaction [Unknown]
  - Apnoea [Not Recovered/Not Resolved]
  - Vision blurred [Not Recovered/Not Resolved]

NARRATIVE: CASE EVENT DATE: 2013
